FAERS Safety Report 9290892 (Version 1)
Quarter: 2013Q2

REPORT INFORMATION
  Report Type: Spontaneous
  Country: US (occurrence: None)
  Receive Date: 20130514
  Receipt Date: 20130514
  Transmission Date: 20140414
  Serious: Yes (Hospitalization)
  Sender: FDA-Public Use
  Company Number: None

PATIENT
  Age: 74 Year
  Sex: Male
  Weight: 80.74 kg

DRUGS (11)
  1. MLN8237 ALISERTIB [Suspect]
     Indication: METASTATIC MALIGNANT MELANOMA
     Dosage: 50MG BID PO X 7 DAYS Q3W
     Route: 048
     Dates: start: 20121023, end: 20130304
  2. DILTIAZEM ER [Concomitant]
  3. POTASSIUM CHLORIDE [Concomitant]
  4. DIOVAN [Concomitant]
  5. HCTZ [Concomitant]
  6. AMLODIPINE [Concomitant]
  7. ARICEPT [Concomitant]
  8. ASPIRIN [Concomitant]
  9. SIMVASTATIN [Concomitant]
  10. LOVENOX [Concomitant]
  11. ALTRIL [Concomitant]

REACTIONS (4)
  - Dyspnoea [None]
  - Temperature intolerance [None]
  - Anaemia [None]
  - Pancytopenia [None]
